FAERS Safety Report 7688079-5 (Version None)
Quarter: 2011Q3

REPORT INFORMATION
  Report Type: 
  Country: None (occurrence: None)
  Receive Date: 20110817
  Receipt Date: 20110808
  Transmission Date: 20111222
  Serious: Yes (Other)
  Sender: FDA-Public Use
  Company Number: JP-BRISTOL-MYERS SQUIBB COMPANY-15953102

PATIENT
  Age: 50 Year
  Sex: Male

DRUGS (6)
  1. CARBOPLATIN [Suspect]
  2. CISPLATIN [Suspect]
     Dosage: 92.5MG
  3. DOXORUBICIN HCL [Suspect]
     Dosage: 74.0 MG
  4. PACLITAXEL [Suspect]
     Dosage: DOSAGE:362MG
  5. CYCLOPHOSPHAMIDE [Suspect]
     Dosage: 1295 MG
  6. VINCRISTINE [Suspect]
     Dosage: 1.11 MG

REACTIONS (3)
  - FEBRILE NEUTROPENIA [None]
  - NEUROPATHY PERIPHERAL [None]
  - CAMPYLOBACTER INTESTINAL INFECTION [None]
